FAERS Safety Report 20471371 (Version 1)
Quarter: 2022Q1

REPORT INFORMATION
  Report Type: Spontaneous
  Country: US (occurrence: US)
  Receive Date: 20220214
  Receipt Date: 20220214
  Transmission Date: 20220424
  Serious: Yes (Other)
  Sender: FDA-Public Use
  Company Number: US-PFIZER INC-2019313690

PATIENT
  Age: 79 Year
  Sex: Female
  Weight: 89.36 kg

DRUGS (5)
  1. BOSULIF [Suspect]
     Active Substance: BOSUTINIB MONOHYDRATE
     Indication: Chronic myeloid leukaemia
     Dosage: 100 MG, DAILY (1 TAB 1- 100 MG DAILY)
     Route: 048
     Dates: start: 201907
  2. BOSULIF [Suspect]
     Active Substance: BOSUTINIB MONOHYDRATE
     Dosage: ALTERNATING BETWEEN100 AND 200MG EVERY OTHER DAY (100/200 MG/1 PILL THEN ALT 2 PILLS NEXT DAY)
     Route: 048
     Dates: start: 201909
  3. BOSULIF [Suspect]
     Active Substance: BOSUTINIB MONOHYDRATE
     Dosage: 200 MG, ALTERNATE DAY (100 MG TABS ALTERNATE WITH 2 TABS 200 MG ALTERNATE WITH 1TAB DAILY/200 MG ALT
     Route: 048
  4. BOSULIF [Suspect]
     Active Substance: BOSUTINIB MONOHYDRATE
     Dosage: 100 MG, ALTERNATE DAY (100 MG TABS ALTERNATE WITH 2 TABS 200 MG ALTERNATE WITH 1TAB DAILY)
     Route: 048
  5. BOSULIF [Suspect]
     Active Substance: BOSUTINIB MONOHYDRATE
     Dosage: 100 DF (PATIENT TAKES BOSULIF 100 TABLETS)
     Route: 048

REACTIONS (3)
  - Blood pressure increased [Unknown]
  - Off label use [Unknown]
  - Product use issue [Unknown]

NARRATIVE: CASE EVENT DATE: 20190901
